FAERS Safety Report 18325533 (Version 2)
Quarter: 2021Q1

REPORT INFORMATION
  Report Type: Spontaneous
  Country: US (occurrence: US)
  Receive Date: 20200929
  Receipt Date: 20210212
  Transmission Date: 20210419
  Serious: Yes (Hospitalization, Other)
  Sender: FDA-Public Use
  Company Number: US-VIELABIO-VIE-2020-US-000006

PATIENT
  Age: 59 Year
  Sex: Female

DRUGS (1)
  1. UPLIZNA [Suspect]
     Active Substance: INEBILIZUMAB-CDON
     Indication: NEUROMYELITIS OPTICA SPECTRUM DISORDER
     Dosage: 300 MILLIGRAM, UNK
     Route: 042
     Dates: start: 20200804

REACTIONS (10)
  - Thrombosis [Unknown]
  - Nausea [Unknown]
  - Peripheral swelling [Unknown]
  - COVID-19 [Unknown]
  - Hypoaesthesia [Unknown]
  - Vomiting [Unknown]
  - Arthralgia [Unknown]
  - Malaise [Unknown]
  - Peripheral coldness [Unknown]
  - Alopecia [Unknown]

NARRATIVE: CASE EVENT DATE: 20200820
